FAERS Safety Report 21527816 (Version 1)
Quarter: 2022Q4

REPORT INFORMATION
  Report Type: Spontaneous
  Country: US (occurrence: US)
  Receive Date: 20221031
  Receipt Date: 20221031
  Transmission Date: 20230113
  Serious: Yes (Life-Threatening, Hospitalization, Other)
  Sender: FDA-Public Use
  Company Number: US-PFIZER INC-202201237805

PATIENT
  Age: 29 Year
  Sex: Female

DRUGS (3)
  1. FENTANYL CITRATE [Suspect]
     Active Substance: FENTANYL CITRATE
     Dosage: 25 BAGS DAILY
     Route: 042
  2. HEROIN [Suspect]
     Active Substance: DIAMORPHINE
     Dosage: 25 BAGS DAILY
     Route: 042
  3. XYLAZINE [Suspect]
     Active Substance: XYLAZINE
     Dosage: UNK

REACTIONS (4)
  - Intentional overdose [Unknown]
  - Drug abuse [Unknown]
  - Toxicity to various agents [Unknown]
  - Drug withdrawal syndrome [Recovered/Resolved]
